FAERS Safety Report 24142829 (Version 1)
Quarter: 2024Q3

REPORT INFORMATION
  Report Type: Spontaneous
  Country: US (occurrence: None)
  Receive Date: 20240726
  Receipt Date: 20240726
  Transmission Date: 20241017
  Serious: Yes (Other)
  Sender: ASTRAZENECA
  Company Number: 2024A166752

PATIENT
  Sex: Female
  Weight: 96.3 kg

DRUGS (4)
  1. FASLODEX [Suspect]
     Active Substance: FULVESTRANT
     Dosage: UNKNOWN
     Route: 030
  2. IBRANCE [Suspect]
     Active Substance: PALBOCICLIB
     Dosage: UNKNOWN
     Route: 048
     Dates: start: 20230410
  3. IBRANCE [Suspect]
     Active Substance: PALBOCICLIB
     Dosage: 100.0MG UNKNOWN
     Route: 048
     Dates: start: 20230531
  4. PALBOCICLIB [Suspect]
     Active Substance: PALBOCICLIB
     Dosage: PALBOCICLIB ORAL 100 MG TABLET 100 MG ORALLY DAILY. TAKE ON DAYS 1-21 OF A 28 DAY CYCLE. TAKE WIT...
     Route: 048

REACTIONS (3)
  - Breast cancer recurrent [Unknown]
  - Breast cancer metastatic [Unknown]
  - Anaemia [Unknown]
